FAERS Safety Report 13359163 (Version 1)
Quarter: 2017Q1

REPORT INFORMATION
  Report Type: Spontaneous
  Country: US (occurrence: US)
  Receive Date: 20170321
  Receipt Date: 20170321
  Transmission Date: 20170429
  Serious: Yes (Disabling)
  Sender: FDA-Public Use
  Company Number: None

PATIENT
  Age: 55 Year
  Sex: Female
  Weight: 59.4 kg

DRUGS (1)
  1. IBUPROFEN 200MG CVS HEALTH [Suspect]
     Active Substance: IBUPROFEN
     Indication: PAIN
     Route: 048

REACTIONS (6)
  - Dyspnoea [None]
  - Anxiety [None]
  - Diarrhoea [None]
  - Abdominal pain upper [None]
  - Confusional state [None]
  - Asthenia [None]

NARRATIVE: CASE EVENT DATE: 20170318
